FAERS Safety Report 21927599 (Version 1)
Quarter: 2023Q1

REPORT INFORMATION
  Report Type: Spontaneous
  Country: US (occurrence: None)
  Receive Date: 20230130
  Receipt Date: 20230130
  Transmission Date: 20230417
  Serious: No
  Sender: FDA-Public Use
  Company Number: None

PATIENT
  Age: 67 Year
  Sex: Male
  Weight: 74.25 kg

DRUGS (10)
  1. CEFDINIR [Suspect]
     Active Substance: CEFDINIR
     Indication: Oropharyngeal pain
     Dosage: OTHER QUANTITY : 1 CAPSULE(S);?FREQUENCY : TWICE A DAY;?
     Route: 048
  2. CEFDINIR [Suspect]
     Active Substance: CEFDINIR
     Indication: Pain
  3. AZELASTINE [Concomitant]
     Active Substance: AZELASTINE
  4. FLUTICASONE [Concomitant]
     Active Substance: FLUTICASONE
  5. AMLODIPINE [Concomitant]
     Active Substance: AMLODIPINE BESYLATE
  6. ATORVASTATIN [Concomitant]
     Active Substance: ATORVASTATIN
  7. ZYRTEC [Concomitant]
     Active Substance: CETIRIZINE HYDROCHLORIDE
  8. ZINC [Concomitant]
     Active Substance: ZINC
  9. COENZYME Q10 [Concomitant]
     Active Substance: DIETARY SUPPLEMENT\UBIDECARENONE
  10. OMEGA 3 [Concomitant]
     Active Substance: CAPSAICIN

REACTIONS (3)
  - Epistaxis [None]
  - Hypertension [None]
  - Haemorrhage [None]

NARRATIVE: CASE EVENT DATE: 20230125
